FAERS Safety Report 9825841 (Version 1)
Quarter: 2013Q4

REPORT INFORMATION
  Report Type: Spontaneous
  Country: US (occurrence: None)
  Receive Date: 20131223
  Receipt Date: 20131223
  Transmission Date: 20140711
  Serious: No
  Sender: FDA-Public Use
  Company Number: 221090LEO

PATIENT
  Age: 66 Year
  Sex: Male

DRUGS (9)
  1. PICATO [Suspect]
     Indication: SKIN CANCER
     Dosage: 1 TUBE (1 IN 1 D), TOPICAL
     Route: 061
     Dates: start: 20130324
  2. METFORMIN (METFORMIN) [Concomitant]
  3. GLIPIZIDE (GLIPIZIDE) [Suspect]
  4. RAMIPRIL (RAMIPRIL) [Concomitant]
  5. JANUVIA (SITAGLIPTIN PHOSPHATE) [Concomitant]
  6. ZETIA (EZETIMIBE) [Concomitant]
  7. OMEPRAZOLE (OMEPRAZOLE) [Concomitant]
  8. ATORVASTATIN (ATORVASTATIN) [Concomitant]
  9. ASPIRIN (ACETYLSALICYLIC ACID) [Concomitant]

REACTIONS (3)
  - Dizziness [None]
  - Headache [None]
  - Off label use [None]
